FAERS Safety Report 10703588 (Version 2)
Quarter: 2015Q1

REPORT INFORMATION
  Report Type: Spontaneous
  Country: ES (occurrence: ES)
  Receive Date: 20150112
  Receipt Date: 20150112
  Transmission Date: 20150721
  Serious: Yes (Other)
  Sender: FDA-Public Use
  Company Number: ES-TEVA-513673ISR

PATIENT
  Age: 70 Year
  Sex: Female

DRUGS (3)
  1. HYDROXYZINE [Suspect]
     Active Substance: HYDROXYZINE\HYDROXYZINE HYDROCHLORIDE
     Indication: LICHEN PLANUS
     Route: 048
  2. PREDNISONE. [Concomitant]
     Active Substance: PREDNISONE
     Indication: LICHEN PLANUS
  3. CETIRIZINA [Suspect]
     Active Substance: CETIRIZINE HYDROCHLORIDE
     Indication: NASOPHARYNGITIS
     Dosage: 10 MILLIGRAM DAILY;
     Route: 048

REACTIONS (3)
  - Toxic skin eruption [Unknown]
  - Skin exfoliation [Unknown]
  - Palmar erythema [Unknown]

NARRATIVE: CASE EVENT DATE: 201306
